FAERS Safety Report 7579533-5 (Version None)
Quarter: 2011Q2

REPORT INFORMATION
  Report Type: 
  Country: None (occurrence: None)
  Receive Date: 20110629
  Receipt Date: 20110620
  Transmission Date: 20111010
  Serious: Yes (Other)
  Sender: FDA-Public Use
  Company Number: US-BAYER-2011-053046

PATIENT
  Age: 23 Year
  Sex: Male

DRUGS (1)
  1. BETASERON [Suspect]
     Indication: PRODUCT USED FOR UNKNOWN INDICATION
     Dosage: 0.125 MG, QOD
     Route: 058
     Dates: start: 20110527, end: 20110616

REACTIONS (4)
  - SUICIDAL IDEATION [None]
  - HOMICIDAL IDEATION [None]
  - ANGER [None]
  - DECREASED APPETITE [None]
